FAERS Safety Report 6032772-7 (Version None)
Quarter: 2009Q1

REPORT INFORMATION
  Report Type: 
  Country: None (occurrence: None)
  Receive Date: 20090107
  Receipt Date: 20090107
  Transmission Date: 20090719
  Serious: Yes (Hospitalization)
  Sender: FDA-Public Use
  Company Number: None

PATIENT
  Age: 3 Year
  Sex: Female
  Weight: 12 kg

DRUGS (6)
  1. SIROLIMUS [Suspect]
     Indication: NEUROFIBROMA
     Dosage: 0.3MG BID, P.O.
     Route: 048
     Dates: start: 20081112, end: 20081201
  2. SIROLIMUS [Suspect]
     Indication: NEUROFIBROMA
     Dosage: 0.3MG BID, P.O.
     Route: 048
     Dates: start: 20081226, end: 20090101
  3. OXYTROL [Concomitant]
  4. ALBUTEROL SULFATE [Concomitant]
  5. SINGULAIR [Concomitant]
  6. SENNA [Concomitant]

REACTIONS (3)
  - HAEMOGLOBIN DECREASED [None]
  - HYDRONEPHROSIS [None]
  - PYREXIA [None]
